FAERS Safety Report 20007596 (Version 2)
Quarter: 2021Q4

REPORT INFORMATION
  Report Type: Spontaneous
  Country: CN (occurrence: CN)
  Receive Date: 20211029
  Receipt Date: 20211217
  Transmission Date: 20220304
  Serious: Yes (Death, Hospitalization)
  Sender: FDA-Public Use
  Company Number: CN-ZAILAB-ZAI202100759

PATIENT
  Age: 58 Year
  Sex: Male
  Weight: 52.5 kg

DRUGS (2)
  1. QINLOCK [Suspect]
     Active Substance: RIPRETINIB
     Indication: Gastrointestinal stromal tumour
     Dosage: 150 MG, QD
     Route: 048
     Dates: start: 20210820, end: 20210922
  2. QINLOCK [Suspect]
     Active Substance: RIPRETINIB
     Dosage: 50 MG, 1-2 TABLETS
     Route: 048
     Dates: start: 20211019

REACTIONS (4)
  - Neoplasm progression [Fatal]
  - Disease recurrence [Recovered/Resolved]
  - Pleural effusion [Recovering/Resolving]
  - Arthralgia [Recovering/Resolving]

NARRATIVE: CASE EVENT DATE: 20210920
